FAERS Safety Report 4649232-8 (Version None)
Quarter: 2005Q2

REPORT INFORMATION
  Report Type: 
  Country: None (occurrence: None)
  Receive Date: 20050429
  Receipt Date: 20030324
  Transmission Date: 20051028
  Serious: Yes (Hospitalization)
  Sender: FDA-Public Use
  Company Number: US-BRISTOL-MYERS SQUIBB COMPANY-12200374

PATIENT
  Age: 22 Year
  Sex: Female

DRUGS (12)
  1. CISPLATIN [Suspect]
     Indication: SQUAMOUS CELL CARCINOMA
     Dosage: LAST ADMINISTERED ON 11-MAY-2001
     Route: 042
     Dates: start: 20010228, end: 20010228
  2. CARBOPLATIN [Suspect]
     Indication: SQUAMOUS CELL CARCINOMA
     Route: 042
     Dates: start: 20010318, end: 20010318
  3. CETUXIMAB [Suspect]
     Indication: SQUAMOUS CELL CARCINOMA
     Dosage: START DATE:  28-FEB-2001
     Route: 042
     Dates: start: 20010504, end: 20010504
  4. HYDROMORPHONE HCL [Concomitant]
     Dates: start: 20001220
  5. TYLENOL [Concomitant]
     Dates: start: 20010228
  6. BENADRYL [Concomitant]
     Dates: start: 20010228
  7. NYSTATIN [Concomitant]
     Indication: ORAL CANDIDIASIS
     Route: 048
  8. NYSTATIN [Concomitant]
  9. FENTANYL [Concomitant]
     Indication: PAIN
     Route: 062
     Dates: start: 20010315
  10. LORAZEPAM [Concomitant]
  11. MORPHINE [Concomitant]
     Indication: PAIN
  12. NEUPOGEN [Concomitant]
     Route: 058

REACTIONS (1)
  - PNEUMONIA ASPIRATION [None]
